FAERS Safety Report 18347320 (Version 30)
Quarter: 2021Q2

REPORT INFORMATION
  Report Type: Report from Study
  Country: CN (occurrence: CN)
  Receive Date: 20201005
  Receipt Date: 20210615
  Transmission Date: 20210717
  Serious: Yes (Hospitalization)
  Sender: FDA-Public Use
  Company Number: CN-ROCHE-2687402

PATIENT
  Age: 62 Year
  Sex: Female
  Weight: 64.1 kg

DRUGS (94)
  1. BENDAMUSTINE [Suspect]
     Active Substance: BENDAMUSTINE
     Indication: DIFFUSE LARGE B-CELL LYMPHOMA
     Dosage: MOST RECENT DOSE PRIOR TO LUNG INFECTION FIRST EPISODE: 13/JUL/2020?MOST RECENT DOSE PRIOR TO INTERS
     Route: 042
     Dates: start: 20200712
  2. POTASSIUM CHLORIDE. [Concomitant]
     Active Substance: POTASSIUM CHLORIDE
     Dates: start: 20201003, end: 20201004
  3. XYZAL [Concomitant]
     Active Substance: LEVOCETIRIZINE DIHYDROCHLORIDE
     Indication: RASH
     Dates: start: 20200820, end: 20200901
  4. TROPISETRON HYDROCHLORIDE [Concomitant]
     Active Substance: TROPISETRON HYDROCHLORIDE
     Dates: start: 20200909, end: 20200909
  5. LORATADINE. [Concomitant]
     Active Substance: LORATADINE
     Dates: start: 20200727, end: 20200729
  6. DEXAMETHASONE SODIUM PHOSPHATE. [Concomitant]
     Active Substance: DEXAMETHASONE SODIUM PHOSPHATE
     Indication: PRURITUS
     Route: 042
     Dates: start: 20201010, end: 20201010
  7. OMEPRAZOLE SODIUM [Concomitant]
     Active Substance: OMEPRAZOLE SODIUM
     Route: 042
     Dates: start: 20200929, end: 20201006
  8. OMEPRAZOLE SODIUM [Concomitant]
     Active Substance: OMEPRAZOLE SODIUM
     Route: 042
     Dates: start: 20201010, end: 20201010
  9. IBUPROFEN SUSTAINED RELEASE [Concomitant]
     Dates: start: 20200712, end: 20200712
  10. AVELOX [Concomitant]
     Active Substance: MOXIFLOXACIN HYDROCHLORIDE
     Dates: start: 20200713, end: 20200713
  11. METOPROLOL TARTRATE. [Concomitant]
     Active Substance: METOPROLOL TARTRATE
     Dates: start: 20200715, end: 20200715
  12. METHYLPREDNISOLONE SODIUM SUCCINATE. [Concomitant]
     Active Substance: METHYLPREDNISOLONE SODIUM SUCCINATE
     Route: 042
     Dates: start: 20200929, end: 20201006
  13. LANSOPRAZOLE. [Concomitant]
     Active Substance: LANSOPRAZOLE
     Dates: start: 20201020, end: 20201104
  14. SODIUM BICARBONATE. [Concomitant]
     Active Substance: SODIUM BICARBONATE
     Dates: start: 20200909, end: 20200911
  15. SODIUM BICARBONATE. [Concomitant]
     Active Substance: SODIUM BICARBONATE
     Dates: start: 20200716, end: 20200723
  16. TROPISETRON HYDROCHLORIDE [Concomitant]
     Active Substance: TROPISETRON HYDROCHLORIDE
     Dates: start: 20201009, end: 20201010
  17. LORATADINE. [Concomitant]
     Active Substance: LORATADINE
     Dates: start: 20200810, end: 20200813
  18. PREDNISONE ACETATE [Concomitant]
     Active Substance: PREDNISONE ACETATE
     Dates: start: 20201118, end: 20201124
  19. GANCICLOVIR. [Concomitant]
     Active Substance: GANCICLOVIR
     Dates: start: 20200711
  20. PANANGIN [Concomitant]
     Active Substance: MAGNESIUM ASPARTATE\POTASSIUM ASPARTATE
     Dates: start: 20200714, end: 20200714
  21. FUROSEMIDE. [Concomitant]
     Active Substance: FUROSEMIDE
     Dates: start: 20201023, end: 20201023
  22. GENTAMYCIN SULFATE [Concomitant]
     Active Substance: GENTAMICIN SULFATE
     Indication: STOMATITIS
     Dates: start: 20200723, end: 20200723
  23. ETAMSYLATE [Concomitant]
     Active Substance: ETHAMSYLATE
     Dosage: PREVENT BLEEDING
     Dates: start: 20200718, end: 20200719
  24. KANG FU XIN YE [Concomitant]
     Indication: STOMATITIS
     Dates: start: 20200723, end: 20200723
  25. POLATUZUMAB VEDOTIN. [Suspect]
     Active Substance: POLATUZUMAB VEDOTIN
     Indication: DIFFUSE LARGE B-CELL LYMPHOMA
     Dosage: MOST RECENT DOSE PRIOR TO LUNG INFECTION FIRST EPISODE: 12/JUL/2020. MOST RECENT DOSE PRIOR TO LUNG
     Route: 042
     Dates: start: 20200712
  26. CALAMINE LOTION [Concomitant]
     Active Substance: CALAMINE LOTION
     Indication: RASH
     Dates: start: 20200902
  27. TROPISETRON HYDROCHLORIDE [Concomitant]
     Active Substance: TROPISETRON HYDROCHLORIDE
     Dates: start: 20200910, end: 20200911
  28. LORATADINE. [Concomitant]
     Active Substance: LORATADINE
     Indication: RASH
     Dates: start: 20200910, end: 20200911
  29. LIDOCAINE HYDROCHLORIDE. [Concomitant]
     Active Substance: LIDOCAINE HYDROCHLORIDE
     Indication: STOMATITIS
     Dates: start: 20200910, end: 20200910
  30. LIDOCAINE HYDROCHLORIDE. [Concomitant]
     Active Substance: LIDOCAINE HYDROCHLORIDE
     Dates: start: 20200723, end: 20200723
  31. PREDNISONE ACETATE [Concomitant]
     Active Substance: PREDNISONE ACETATE
     Dates: start: 20201112, end: 20201117
  32. PREDNISONE ACETATE [Concomitant]
     Active Substance: PREDNISONE ACETATE
     Dates: start: 20201105, end: 20201111
  33. FUROSEMIDE. [Concomitant]
     Active Substance: FUROSEMIDE
     Indication: POLYURIA
     Dates: start: 20200709, end: 20200714
  34. RIVAROXABAN [Concomitant]
     Active Substance: RIVAROXABAN
     Indication: VENOUS THROMBOSIS
     Dates: start: 20201104, end: 20201104
  35. RITUXIMAB. [Suspect]
     Active Substance: RITUXIMAB
     Indication: DIFFUSE LARGE B-CELL LYMPHOMA
     Dosage: MOST RECENT DOSE PRIOR TO LUNG INFECTION FIRST EPISODE: 11/JUL/2020?MOST RECENT DOSE PRIOR TO INTERS
     Route: 042
     Dates: start: 20200711
  36. PEGYLATED RECOMBINANT HUMAN GRANULOCYTE COLONY STIMULATING FACTOR [Concomitant]
     Indication: LEUKOPENIA
     Dates: start: 20201012, end: 20201012
  37. LORATADINE. [Concomitant]
     Active Substance: LORATADINE
     Indication: PRURITUS
     Dates: start: 20201010, end: 20201010
  38. DIPHENHYDRAMINE HYDROCHLORIDE. [Concomitant]
     Active Substance: DIPHENHYDRAMINE HYDROCHLORIDE
     Dates: start: 20200909, end: 20200909
  39. PREDNISONE ACETATE [Concomitant]
     Active Substance: PREDNISONE ACETATE
     Dates: start: 20201216, end: 20201222
  40. PREDNISONE ACETATE [Concomitant]
     Active Substance: PREDNISONE ACETATE
     Dates: start: 20201202, end: 20201208
  41. SOLU?MEDROL [Concomitant]
     Active Substance: METHYLPREDNISOLONE SODIUM SUCCINATE
     Dates: start: 20200926, end: 20201006
  42. AVELOX [Concomitant]
     Active Substance: MOXIFLOXACIN HYDROCHLORIDE
     Dates: start: 20201113, end: 20201129
  43. CYTARABINE. [Concomitant]
     Active Substance: CYTARABINE
     Dates: start: 20200731, end: 20200731
  44. POTASSIUM CHLORIDE. [Concomitant]
     Active Substance: POTASSIUM CHLORIDE
     Dates: start: 20200802, end: 20200803
  45. SODIUM BICARBONATE. [Concomitant]
     Active Substance: SODIUM BICARBONATE
     Dates: start: 20200709, end: 20200713
  46. TROPISETRON HYDROCHLORIDE [Concomitant]
     Active Substance: TROPISETRON HYDROCHLORIDE
     Dates: start: 20201009, end: 20201009
  47. PREDNISONE ACETATE [Concomitant]
     Active Substance: PREDNISONE ACETATE
     Route: 048
     Dates: start: 20200711, end: 20200712
  48. DEXAMETHASONE SODIUM PHOSPHATE. [Concomitant]
     Active Substance: DEXAMETHASONE SODIUM PHOSPHATE
     Indication: PROPHYLAXIS
     Route: 050
     Dates: start: 20200731, end: 20200731
  49. IBUPROFEN SUSTAINED RELEASE [Concomitant]
     Dates: start: 20200714, end: 20200715
  50. LYSINE ACETYLSALICYLATE [Concomitant]
     Active Substance: ASPIRIN DL-LYSINE
     Dates: start: 20200713, end: 20200713
  51. ALLOPURINOL. [Concomitant]
     Active Substance: ALLOPURINOL
     Dates: start: 20200709, end: 20200709
  52. ALLOPURINOL. [Concomitant]
     Active Substance: ALLOPURINOL
     Dates: start: 20200716, end: 20200723
  53. ALLOPURINOL. [Concomitant]
     Active Substance: ALLOPURINOL
     Dates: start: 20200709, end: 20200715
  54. SULFAMETHOXAZOLE [Concomitant]
     Active Substance: SULFAMETHOXAZOLE
     Dates: start: 20200711, end: 20200726
  55. BICYCLOL [Concomitant]
     Active Substance: BICYCLOL
     Dates: start: 20200716, end: 20200723
  56. POTASSIUM CITRATE. [Concomitant]
     Active Substance: POTASSIUM CITRATE
     Indication: HYPOKALAEMIA
     Dates: start: 20201030, end: 20201030
  57. HUMAN ALBUMIN [Concomitant]
     Active Substance: ALBUMIN HUMAN
     Indication: HYPOKALAEMIA
     Dates: start: 20200716, end: 20200717
  58. OXYGEN. [Concomitant]
     Active Substance: OXYGEN
     Dates: start: 20200716, end: 20200723
  59. COMPOUND SULFAMETHOXAZOLE [Concomitant]
     Active Substance: SULFAMETHOXAZOLE
     Dates: start: 20200711, end: 20200713
  60. CLARITHROMYCIN. [Concomitant]
     Active Substance: CLARITHROMYCIN
     Dates: start: 20201106, end: 20201112
  61. CALAMINE LOTION [Concomitant]
     Active Substance: CALAMINE LOTION
     Dosage: TREATMENT OF SKIN RASH
     Dates: start: 20200818, end: 20201110
  62. TROPISETRON HYDROCHLORIDE [Concomitant]
     Active Substance: TROPISETRON HYDROCHLORIDE
     Dates: start: 20200712, end: 20200713
  63. DIPHENHYDRAMINE HYDROCHLORIDE. [Concomitant]
     Active Substance: DIPHENHYDRAMINE HYDROCHLORIDE
     Dates: start: 20201010, end: 20201010
  64. PREDNISONE ACETATE [Concomitant]
     Active Substance: PREDNISONE ACETATE
     Route: 048
     Dates: start: 20200909, end: 20200909
  65. PREDNISONE ACETATE [Concomitant]
     Active Substance: PREDNISONE ACETATE
     Dates: start: 20201125, end: 20201201
  66. ALLOPURINOL. [Concomitant]
     Active Substance: ALLOPURINOL
     Dates: start: 20200711, end: 20200715
  67. COMPOUND CHLORHEXIDINE GARGLE [Concomitant]
     Dates: start: 20200716, end: 20200716
  68. COMPOUND METHOXYPHENAMINE [Concomitant]
     Dosage: USED TO TREAT ASTHMA
     Dates: start: 20200718, end: 20200723
  69. POTASSIUM CHLORIDE. [Concomitant]
     Active Substance: POTASSIUM CHLORIDE
     Indication: HYPOKALAEMIA
     Dates: start: 20201019, end: 20201019
  70. POTASSIUM CHLORIDE. [Concomitant]
     Active Substance: POTASSIUM CHLORIDE
     Dates: start: 20200709, end: 20200713
  71. DIPHENHYDRAMINE HYDROCHLORIDE. [Concomitant]
     Active Substance: DIPHENHYDRAMINE HYDROCHLORIDE
     Dates: start: 20201009, end: 20201009
  72. PREDNISONE ACETATE [Concomitant]
     Active Substance: PREDNISONE ACETATE
     Dates: start: 20201223, end: 20201229
  73. PREDNISONE ACETATE [Concomitant]
     Active Substance: PREDNISONE ACETATE
     Route: 048
     Dates: start: 20201009, end: 20201009
  74. IBUPROFEN SUSTAINED RELEASE [Concomitant]
     Indication: PYREXIA
     Dates: start: 20201009, end: 20201009
  75. IBUPROFEN SUSTAINED RELEASE [Concomitant]
     Dates: start: 20200731, end: 20200731
  76. METOCLOPRAMIDE DIHYDROCHLORIDE [Concomitant]
     Indication: PROPHYLAXIS OF NAUSEA AND VOMITING
     Dates: start: 20200715, end: 20200715
  77. SPIRONOLACTONE. [Concomitant]
     Active Substance: SPIRONOLACTONE
     Indication: POLYURIA
     Dates: start: 20200717, end: 20200717
  78. NYSFUNGIN [Concomitant]
     Indication: STOMATITIS
     Dates: start: 20200723, end: 20200723
  79. METHYLPREDNISOLONE SODIUM SUCCINATE. [Concomitant]
     Active Substance: METHYLPREDNISOLONE SODIUM SUCCINATE
     Indication: ANTIINFLAMMATORY THERAPY
     Route: 042
     Dates: start: 20200929, end: 20201001
  80. POTASSIUM CHLORIDE. [Concomitant]
     Active Substance: POTASSIUM CHLORIDE
     Dates: start: 20200909, end: 20200911
  81. POTASSIUM CHLORIDE. [Concomitant]
     Active Substance: POTASSIUM CHLORIDE
     Dates: start: 20200713, end: 20200714
  82. POTASSIUM CHLORIDE. [Concomitant]
     Active Substance: POTASSIUM CHLORIDE
     Dates: start: 20200716, end: 20200718
  83. DIPHENHYDRAMINE HYDROCHLORIDE. [Concomitant]
     Active Substance: DIPHENHYDRAMINE HYDROCHLORIDE
     Dates: start: 20200711, end: 20200712
  84. LIDOCAINE HYDROCHLORIDE. [Concomitant]
     Active Substance: LIDOCAINE HYDROCHLORIDE
     Indication: STOMATITIS
     Dates: start: 20200703, end: 20200703
  85. PREDNISONE ACETATE [Concomitant]
     Active Substance: PREDNISONE ACETATE
     Route: 048
     Dates: start: 20200730, end: 20200730
  86. PREDNISONE ACETATE [Concomitant]
     Active Substance: PREDNISONE ACETATE
     Dates: start: 20201209, end: 20201215
  87. IBUPROFEN SUSTAINED RELEASE [Concomitant]
     Dates: start: 20200711, end: 20200712
  88. IBUPROFEN SUSTAINED RELEASE [Concomitant]
     Dates: start: 20200928, end: 20200928
  89. HIRUDOID [Concomitant]
     Active Substance: GLYCOSAMINOGLYCANS
     Dates: start: 20200709, end: 20200709
  90. CALCIUM GLUCONATE. [Concomitant]
     Active Substance: CALCIUM GLUCONATE
     Dates: start: 20200714, end: 20200714
  91. GLYCEROL [Concomitant]
     Active Substance: GLYCERIN
     Indication: CONSTIPATION
     Dates: start: 20200801, end: 20200802
  92. CONCENTRATED SODIUM CHLORIDE [Concomitant]
     Active Substance: SODIUM CHLORIDE
     Indication: PRODUCTIVE COUGH
     Dates: start: 20200716, end: 20200716
  93. MAGNESIUM ISOGLYCYRRHIZINATE [Concomitant]
     Active Substance: MAGNESIUM ISOGLYCYRRHIZINATE
     Dates: start: 20200711, end: 20200713
  94. CAR?T [Concomitant]
     Dates: start: 20210507, end: 20210517

REACTIONS (2)
  - Pneumonia [Recovered/Resolved]
  - Interstitial lung disease [Not Recovered/Not Resolved]

NARRATIVE: CASE EVENT DATE: 20200713
